FAERS Safety Report 23096597 (Version 1)
Quarter: 2023Q4

REPORT INFORMATION
  Report Type: Spontaneous
  Country: US (occurrence: None)
  Receive Date: 20231022
  Receipt Date: 20231022
  Transmission Date: 20240110
  Serious: Yes (Other)
  Sender: FDA-Public Use
  Company Number: None

PATIENT
  Age: 68 Year
  Sex: Female
  Weight: 92.25 kg

DRUGS (12)
  1. LOVASTATIN [Suspect]
     Active Substance: LOVASTATIN
  2. ATENOLOL [Concomitant]
     Active Substance: ATENOLOL
  3. LEVOTHYROXINE [Concomitant]
     Active Substance: LEVOTHYROXINE
  4. HYDROCHLOROTHIAZIDE [Concomitant]
     Active Substance: HYDROCHLOROTHIAZIDE
  5. PAROXETINE [Concomitant]
     Active Substance: PAROXETINE
  6. OLMESARTAN [Concomitant]
     Active Substance: OLMESARTAN
  7. VITAMIN B12 [Concomitant]
     Active Substance: CYANOCOBALAMIN
  8. B12 complex [Concomitant]
  9. VITAMIN D3 [Concomitant]
     Active Substance: CHOLECALCIFEROL
  10. C [Concomitant]
  11. COLLAGEN [Concomitant]
     Active Substance: COLLAGEN
  12. TYLENOL [Concomitant]
     Active Substance: ACETAMINOPHEN

REACTIONS (6)
  - Myalgia [None]
  - Wrong technique in product usage process [None]
  - Depression [None]
  - Depressed mood [None]
  - Feeling abnormal [None]
  - Anger [None]

NARRATIVE: CASE EVENT DATE: 20231022
